FAERS Safety Report 6110708-8 (Version None)
Quarter: 2009Q1

REPORT INFORMATION
  Report Type: 
  Country: None (occurrence: None)
  Receive Date: 20090309
  Receipt Date: 20090304
  Transmission Date: 20090719
  Serious: No
  Sender: FDA-Public Use
  Company Number: ADE# 09-029

PATIENT

DRUGS (3)
  1. MIDRIN CAPSULES         CARACO [Suspect]
     Route: 064
  2. TOPIRAMATE [Suspect]
     Route: 064
  3. WELLBUTRIN [Suspect]
     Route: 064

REACTIONS (3)
  - CONGENITAL ANOMALY [None]
  - DRUG EXPOSURE BEFORE PREGNANCY [None]
  - PREGNANCY [None]
